FAERS Safety Report 5863628-8 (Version None)
Quarter: 2008Q3

REPORT INFORMATION
  Report Type: 
  Country: None (occurrence: None)
  Receive Date: 20080828
  Receipt Date: 20080818
  Transmission Date: 20090109
  Serious: Yes (Other)
  Sender: FDA-Public Use
  Company Number: US-PFIZER INC-2008043710

PATIENT
  Sex: Female
  Weight: 45.4 kg

DRUGS (3)
  1. CHANTIX [Suspect]
     Indication: SMOKING CESSATION THERAPY
     Route: 048
     Dates: start: 20080507, end: 20080525
  2. ALCOHOL [Suspect]
  3. TYLENOL (CAPLET) [Concomitant]

REACTIONS (5)
  - ALCOHOL INTERACTION [None]
  - CHLAMYDIAL INFECTION [None]
  - DEPRESSED MOOD [None]
  - ORAL PAIN [None]
  - PELVIC INFECTION [None]
